FAERS Safety Report 18960642 (Version 1)
Quarter: 2021Q1

REPORT INFORMATION
  Report Type: Spontaneous
  Country: IT (occurrence: IT)
  Receive Date: 20210303
  Receipt Date: 20210303
  Transmission Date: 20210420
  Serious: Yes (Death, Other)
  Sender: FDA-Public Use
  Company Number: IT-SUN PHARMACEUTICAL INDUSTRIES LTD-2021RR-283489

PATIENT
  Age: 40 Year
  Sex: Female

DRUGS (5)
  1. THALIDOMIDE [Suspect]
     Active Substance: THALIDOMIDE
     Indication: PANCREATIC CARCINOMA METASTATIC
     Dosage: 100 MILLIGRAM, DAILY
     Route: 065
  2. CAPECITABINE. [Suspect]
     Active Substance: CAPECITABINE
     Indication: METASTASES TO BREAST
     Dosage: 2000 MILLIGRAM, DAILY
     Route: 065
     Dates: start: 200807
  3. TEMOZOLOMIDE. [Suspect]
     Active Substance: TEMOZOLOMIDE
     Indication: PANCREATIC CARCINOMA METASTATIC
     Dosage: 150 MILLIGRAM, DAILY
     Route: 065
  4. OCTREOTIDE. [Suspect]
     Active Substance: OCTREOTIDE
     Indication: PANCREATIC CARCINOMA METASTATIC
     Dosage: UNK
     Route: 065
  5. EVEROLIMUS. [Concomitant]
     Active Substance: EVEROLIMUS
     Indication: METASTASES TO BREAST
     Dosage: 10 MILLIGRAM, DAILY
     Route: 065

REACTIONS (1)
  - Disease progression [Fatal]
